FAERS Safety Report 7707995-9 (Version None)
Quarter: 2011Q3

REPORT INFORMATION
  Report Type: 
  Country: None (occurrence: None)
  Receive Date: 20110824
  Receipt Date: 20110816
  Transmission Date: 20111222
  Serious: Yes (Death, Life-Threatening, Hospitalization)
  Sender: FDA-Public Use
  Company Number: US-CELGENEUS-163-21880-11082234

PATIENT
  Sex: Male

DRUGS (5)
  1. AMLODIPINE [Concomitant]
     Indication: HYPERTENSION
     Dosage: .4 MILLIGRAM
     Route: 065
  2. LOVASTATIN [Concomitant]
     Dosage: 20 MILLIGRAM
     Route: 065
  3. BENAZEPRIL HYDROCHLORIDE [Concomitant]
     Indication: HYPERTENSION
     Dosage: .4 MILLIGRAM
     Route: 065
  4. TAMSULOSIN HCL [Concomitant]
     Dosage: .4 MILLIGRAM
     Route: 065
  5. REVLIMID [Suspect]
     Indication: MULTIPLE MYELOMA
     Dosage: 5 MILLIGRAM
     Route: 048
     Dates: start: 20101001

REACTIONS (4)
  - METABOLIC ACIDOSIS [None]
  - COAGULOPATHY [None]
  - RENAL FAILURE ACUTE [None]
  - SHOCK [None]
